FAERS Safety Report 17779659 (Version 5)
Quarter: 2020Q3

REPORT INFORMATION
  Report Type: Spontaneous
  Country: US (occurrence: US)
  Receive Date: 20200513
  Receipt Date: 20200817
  Transmission Date: 20201102
  Serious: Yes (Hospitalization, Disabling)
  Sender: FDA-Public Use
  Company Number: US-SA-2020SA122464

PATIENT

DRUGS (6)
  1. DUPIXENT [Suspect]
     Active Substance: DUPILUMAB
     Indication: DIARRHOEA
  2. PREDNISONE. [Concomitant]
     Active Substance: PREDNISONE
     Indication: PRURITUS
     Dosage: UNK
     Dates: start: 2019
  3. DUPIXENT [Suspect]
     Active Substance: DUPILUMAB
     Indication: PRURITUS
  4. DUPIXENT [Suspect]
     Active Substance: DUPILUMAB
     Indication: DERMATITIS ATOPIC
  5. MYCOPHENOLATE [Concomitant]
     Active Substance: MYCOPHENOLIC ACID
     Dosage: UNK
  6. DUPIXENT [Suspect]
     Active Substance: DUPILUMAB
     Indication: LIVER DISORDER
     Dosage: 300 MG, QOW
     Route: 058
     Dates: start: 202004

REACTIONS (8)
  - Abdominal discomfort [Unknown]
  - Weight decreased [Unknown]
  - Abdominal pain [Unknown]
  - Product use in unapproved indication [Unknown]
  - Therapeutic response decreased [Not Recovered/Not Resolved]
  - Hospitalisation [Unknown]
  - Diarrhoea [Unknown]
  - Pruritus [Not Recovered/Not Resolved]

NARRATIVE: CASE EVENT DATE: 2020
